FAERS Safety Report 9706913 (Version 1)
Quarter: 2013Q4

REPORT INFORMATION
  Report Type: Spontaneous
  Country: US (occurrence: US)
  Receive Date: 20131125
  Receipt Date: 20131125
  Transmission Date: 20140711
  Serious: No
  Sender: FDA-Public Use
  Company Number: US-PFIZER INC-2013331783

PATIENT
  Age: 47 Year
  Sex: Female
  Weight: 61.22 kg

DRUGS (1)
  1. ADVIL [Suspect]
     Indication: HEADACHE
     Dosage: 400 MG, DAILY (TOOK ONLY THREE DOSES)
     Dates: start: 201311, end: 201311

REACTIONS (2)
  - Feeling abnormal [Unknown]
  - Dizziness [Unknown]
